FAERS Safety Report 5143468-8 (Version None)
Quarter: 2006Q4

REPORT INFORMATION
  Report Type: 
  Country: None (occurrence: None)
  Receive Date: 20061101
  Receipt Date: 20061101
  Transmission Date: 20070319
  Serious: Yes (Hospitalization)
  Sender: FDA-Public Use
  Company Number: None

PATIENT
  Age: 68 Year
  Sex: Male
  Weight: 85.5 kg

DRUGS (3)
  1. BEVACIZUMAB (BEVACIZUMAB) 250MG/ ML VIAL, NORMAL SALINE [Suspect]
     Indication: NON-SMALL CELL LUNG CANCER
     Dosage: 15MG/KG, Q3WEEKS, IV
     Route: 042
     Dates: start: 20060817, end: 20060921
  2. PACLITAXEL [Suspect]
     Indication: NON-SMALL CELL LUNG CANCER
     Dosage: 50MG/M2, WEEKLY, IV
     Route: 042
     Dates: start: 20060817, end: 20060921
  3. CARBOPLATIN (300-500MG/M2) [Suspect]
     Indication: NON-SMALL CELL LUNG CANCER
     Dosage: 300-500MG/M2, WEEKLY, IV
     Route: 042
     Dates: start: 20060817, end: 20060921

REACTIONS (3)
  - DEEP VEIN THROMBOSIS [None]
  - PULMONARY EMBOLISM [None]
  - RADIATION OESOPHAGITIS [None]
